FAERS Safety Report 18107230 (Version 1)
Quarter: 2020Q3

REPORT INFORMATION
  Report Type: Spontaneous
  Country: CN (occurrence: CN)
  Receive Date: 20200804
  Receipt Date: 20200804
  Transmission Date: 20201103
  Serious: Yes (Other)
  Sender: FDA-Public Use
  Company Number: CN-ROCHE-2650543

PATIENT
  Age: 65 Year
  Sex: Male

DRUGS (26)
  1. MABTHERA [Suspect]
     Active Substance: RITUXIMAB
     Route: 065
     Dates: start: 201910, end: 202003
  2. MABTHERA [Suspect]
     Active Substance: RITUXIMAB
     Route: 065
     Dates: start: 20200321
  3. IBRUTINIB [Concomitant]
     Active Substance: IBRUTINIB
     Indication: MANTLE CELL LYMPHOMA
     Dates: start: 20190201
  4. THALIDOMIDE [Concomitant]
     Active Substance: THALIDOMIDE
     Indication: MANTLE CELL LYMPHOMA
     Dates: start: 20181101
  5. CYCLOPHOSPHAMIDE. [Concomitant]
     Active Substance: CYCLOPHOSPHAMIDE
     Dates: start: 20181101
  6. CYCLOPHOSPHAMIDE. [Concomitant]
     Active Substance: CYCLOPHOSPHAMIDE
     Dates: start: 20200418
  7. PREDNISONE. [Concomitant]
     Active Substance: PREDNISONE
     Dates: start: 20181101
  8. IBRUTINIB [Concomitant]
     Active Substance: IBRUTINIB
     Dates: start: 20200418
  9. VINCRISTINE [Concomitant]
     Active Substance: VINCRISTINE
     Dates: start: 20181101
  10. IBRUTINIB [Concomitant]
     Active Substance: IBRUTINIB
     Dates: start: 20200424
  11. FLUOROURACIL. [Concomitant]
     Active Substance: FLUOROURACIL
     Indication: MANTLE CELL LYMPHOMA
     Dates: start: 20200101
  12. BORTEZOMIB. [Concomitant]
     Active Substance: BORTEZOMIB
     Indication: MANTLE CELL LYMPHOMA
     Dates: start: 20200418
  13. MABTHERA [Suspect]
     Active Substance: RITUXIMAB
     Indication: MANTLE CELL LYMPHOMA
     Route: 065
     Dates: start: 201807
  14. MABTHERA [Suspect]
     Active Substance: RITUXIMAB
     Route: 065
     Dates: start: 201908
  15. CYCLOPHOSPHAMIDE. [Concomitant]
     Active Substance: CYCLOPHOSPHAMIDE
     Indication: MANTLE CELL LYMPHOMA
     Dates: start: 20180701
  16. VENETOCLAX. [Concomitant]
     Active Substance: VENETOCLAX
     Indication: MANTLE CELL LYMPHOMA
     Dates: start: 20200424
  17. DOXORUBICIN [Concomitant]
     Active Substance: DOXORUBICIN
     Indication: MANTLE CELL LYMPHOMA
     Dates: start: 20180701
  18. IBRUTINIB [Concomitant]
     Active Substance: IBRUTINIB
     Dates: start: 20191001
  19. ACTEMRA [Suspect]
     Active Substance: TOCILIZUMAB
     Indication: CYTOKINE RELEASE SYNDROME
     Route: 065
     Dates: start: 2020
  20. DOXORUBICIN [Concomitant]
     Active Substance: DOXORUBICIN
     Dates: start: 20181101
  21. VINCRISTINE [Concomitant]
     Active Substance: VINCRISTINE
     Indication: MANTLE CELL LYMPHOMA
     Dates: start: 20180701
  22. LENALIDOMIDE [Concomitant]
     Active Substance: LENALIDOMIDE
     Indication: MANTLE CELL LYMPHOMA
     Dates: start: 20190801
  23. CYCLOPHOSPHAMIDE. [Concomitant]
     Active Substance: CYCLOPHOSPHAMIDE
     Dates: start: 20200101
  24. PREDNISONE. [Concomitant]
     Active Substance: PREDNISONE
     Indication: MANTLE CELL LYMPHOMA
     Dates: start: 20180701
  25. IBRUTINIB [Concomitant]
     Active Substance: IBRUTINIB
     Dates: start: 20200321
  26. DEXAMETHASONE. [Concomitant]
     Active Substance: DEXAMETHASONE
     Indication: MANTLE CELL LYMPHOMA
     Dates: start: 20200418

REACTIONS (3)
  - Cytokine release syndrome [Unknown]
  - Intentional product use issue [Unknown]
  - Off label use [Unknown]
